FAERS Safety Report 5958462-4 (Version None)
Quarter: 2008Q4

REPORT INFORMATION
  Report Type: 
  Country: None (occurrence: None)
  Receive Date: 20081119
  Receipt Date: 20081105
  Transmission Date: 20090506
  Serious: Yes (Hospitalization, Other)
  Sender: FDA-Public Use
  Company Number: US-BRISTOL-MYERS SQUIBB COMPANY-14252589

PATIENT
  Age: 52 Year
  Sex: Male
  Weight: 90 kg

DRUGS (10)
  1. CETUXIMAB [Suspect]
     Indication: NON-SMALL CELL LUNG CANCER
     Dates: start: 20070724, end: 20080605
  2. PACLITAXEL [Suspect]
     Indication: NON-SMALL CELL LUNG CANCER
     Dates: start: 20070724, end: 20071106
  3. CARBOPLATIN [Suspect]
     Indication: NON-SMALL CELL LUNG CANCER
     Dates: start: 20070724, end: 20071106
  4. BEVACIZUMAB [Suspect]
     Indication: NON-SMALL CELL LUNG CANCER
     Dates: start: 20070731, end: 20071023
  5. PEPCID [Concomitant]
     Route: 048
  6. ELIDEL [Concomitant]
     Indication: RASH
     Route: 061
  7. DOXYCYCLINE [Concomitant]
     Indication: RASH
     Route: 048
  8. SLOW-MAG [Concomitant]
     Indication: HYPOMAGNESAEMIA
  9. PROTONIX [Concomitant]
     Route: 048
  10. PREDNISONE [Concomitant]
     Route: 048

REACTIONS (5)
  - HAEMATURIA [None]
  - IGA NEPHROPATHY [None]
  - RASH [None]
  - RENAL FAILURE [None]
  - RENAL INJURY [None]
